FAERS Safety Report 7457910-0 (Version None)
Quarter: 2011Q2

REPORT INFORMATION
  Report Type: 
  Country: None (occurrence: None)
  Receive Date: 20110504
  Receipt Date: 20110429
  Transmission Date: 20111010
  Serious: Yes (Hospitalization)
  Sender: FDA-Public Use
  Company Number: GR-SHIRE-SPV1-2011-00541

PATIENT
  Age: 80 Year
  Sex: Male

DRUGS (7)
  1. FOSRENOL [Suspect]
     Indication: HYPERPHOSPHATAEMIA
     Dosage: 1500 MG,  (2 X 750 MG)
     Route: 048
     Dates: start: 20110201, end: 20110201
  2. FOSRENOL [Suspect]
     Indication: RENAL FAILURE CHRONIC
  3. RETACRIT [Concomitant]
     Indication: PRODUCT USED FOR UNKNOWN INDICATION
     Dosage: 10000 IU, OTHER (3/WEEK)
     Route: 065
  4. AMLOPEN [Concomitant]
     Indication: PRODUCT USED FOR UNKNOWN INDICATION
     Dosage: 10 MG, 3X/DAY:TID
     Route: 065
  5. ALDACTONE [Concomitant]
     Indication: PRODUCT USED FOR UNKNOWN INDICATION
     Dosage: 100 MG, UNKNOWN (1/2 X 2)
     Route: 065
  6. LASIX [Concomitant]
     Indication: PRODUCT USED FOR UNKNOWN INDICATION
     Dosage: 500 MG, UNKNOWN (1/4 X 2)
  7. CATAPRESAN                         /00171101/ [Concomitant]
     Indication: PRODUCT USED FOR UNKNOWN INDICATION
     Dosage: 450 MG, (3 X 150MG)
     Route: 065

REACTIONS (1)
  - ILEUS [None]
